FAERS Safety Report 7481971-6 (Version None)
Quarter: 2011Q2

REPORT INFORMATION
  Report Type: 
  Country: None (occurrence: None)
  Receive Date: 20110516
  Receipt Date: 20110504
  Transmission Date: 20111010
  Serious: Yes (Hospitalization, Disabling, Other)
  Sender: FDA-Public Use
  Company Number: US-MERCK-1008USA00265

PATIENT
  Age: 59 Year
  Sex: Female
  Weight: 70 kg

DRUGS (7)
  1. FOSAMAX [Suspect]
     Indication: OSTEOPENIA
     Route: 048
     Dates: start: 20010625, end: 20070822
  2. VITAMIN D (UNSPECIFIED) [Concomitant]
     Route: 048
     Dates: start: 19960101
  3. FOSAMAX PLUS D [Suspect]
     Indication: OSTEOPENIA
     Route: 048
     Dates: start: 20070822, end: 20080401
  4. FOSAMAX [Suspect]
     Indication: OSTEOPOROSIS PROPHYLAXIS
     Route: 048
     Dates: start: 20010625, end: 20070822
  5. CALCIUM (UNSPECIFIED) AND VITAMIN D (UNSPECIFIED) [Concomitant]
     Route: 048
     Dates: start: 19960101
  6. PROTONIX [Concomitant]
     Indication: GASTROOESOPHAGEAL REFLUX DISEASE
     Route: 065
     Dates: start: 20000101
  7. PRILOSEC [Concomitant]
     Indication: GASTROOESOPHAGEAL REFLUX DISEASE
     Route: 048
     Dates: start: 19980101, end: 20080101

REACTIONS (44)
  - LOW TURNOVER OSTEOPATHY [None]
  - GASTROOESOPHAGEAL REFLUX DISEASE [None]
  - ABDOMINAL DISCOMFORT [None]
  - INSOMNIA [None]
  - AMNESIA [None]
  - OESOPHAGITIS [None]
  - BONE INFARCTION [None]
  - STRESS FRACTURE [None]
  - ABDOMINAL DISTENSION [None]
  - BLOOD CHOLESTEROL INCREASED [None]
  - STRESS [None]
  - DIZZINESS [None]
  - JAW DISORDER [None]
  - BODY HEIGHT DECREASED [None]
  - FEMUR FRACTURE [None]
  - DEPRESSION [None]
  - BONE LESION [None]
  - ADVERSE EVENT [None]
  - FALL [None]
  - THROAT IRRITATION [None]
  - MUSCULOSKELETAL DISCOMFORT [None]
  - AGITATION [None]
  - HALLUCINATION [None]
  - PARAESTHESIA [None]
  - HERPES ZOSTER [None]
  - SPINAL OSTEOARTHRITIS [None]
  - ONYCHOMYCOSIS [None]
  - DYSPHAGIA [None]
  - DRUG INTOLERANCE [None]
  - SINUS CONGESTION [None]
  - UPPER RESPIRATORY TRACT CONGESTION [None]
  - ULCER [None]
  - BENIGN COLONIC NEOPLASM [None]
  - BONE DISORDER [None]
  - RIB FRACTURE [None]
  - ARTHROPATHY [None]
  - PAIN [None]
  - ADVERSE DRUG REACTION [None]
  - MENINGITIS HERPES [None]
  - TOOTH FRACTURE [None]
  - PLANTAR FASCIITIS [None]
  - OSTEOPOROSIS [None]
  - OSTEOARTHRITIS [None]
  - ANXIETY [None]
